FAERS Safety Report 18664437 (Version 1)
Quarter: 2020Q4

REPORT INFORMATION
  Report Type: Other
  Country: DK (occurrence: DK)
  Receive Date: 20201225
  Receipt Date: 20201225
  Transmission Date: 20210114
  Serious: Yes (Other)
  Sender: FDA-Public Use
  Company Number: DK-ROCHE-2732963

PATIENT

DRUGS (2)
  1. BEVACIZUMAB. [Suspect]
     Active Substance: BEVACIZUMAB
     Indication: OVARIAN CANCER
     Route: 065
  2. CARBOPLATIN. [Suspect]
     Active Substance: CARBOPLATIN
     Indication: OVARIAN CANCER
     Route: 065

REACTIONS (15)
  - Constipation [Unknown]
  - Ascites [Unknown]
  - Dyspnoea [Unknown]
  - Gastrointestinal fistula [Unknown]
  - Fatigue [Unknown]
  - Dysphonia [Unknown]
  - Cough [Unknown]
  - Impaired healing [Unknown]
  - Deep vein thrombosis [Unknown]
  - Ileus [Unknown]
  - Pleural effusion [Unknown]
  - Infection [Unknown]
  - Vomiting [Unknown]
  - Pain [Unknown]
  - Neutropenia [Unknown]
